FAERS Safety Report 11039358 (Version 1)
Quarter: 2015Q2

REPORT INFORMATION
  Report Type: Spontaneous
  Country: US (occurrence: US)
  Receive Date: 20150416
  Receipt Date: 20150416
  Transmission Date: 20150821
  Serious: No
  Sender: FDA-Public Use
  Company Number: US-MYLANLABS-2015M1007434

PATIENT
  Sex: Female

DRUGS (3)
  1. ESTRADIOL TRANSDERMAL SYSTEM [Suspect]
     Active Substance: ESTRADIOL
     Indication: HOT FLUSH
     Dosage: 0.05 MG/DAY, TWICE WEEKY
     Route: 062
     Dates: start: 20150303
  2. ESTRADIOL TRANSDERMAL SYSTEM [Suspect]
     Active Substance: ESTRADIOL
     Indication: HOT FLUSH
     Dosage: 0.037 MG, QD, CHANGE TW
     Route: 062
     Dates: start: 201502, end: 201503
  3. ESTRADIOL TRANSDERMAL SYSTEM [Suspect]
     Active Substance: ESTRADIOL
     Dosage: 0.0375 MG/DAY, QD
     Route: 062
     Dates: start: 201502, end: 201503

REACTIONS (1)
  - Hot flush [Not Recovered/Not Resolved]

NARRATIVE: CASE EVENT DATE: 2015
